FAERS Safety Report 18113460 (Version 2)
Quarter: 2020Q3

REPORT INFORMATION
  Report Type: Spontaneous
  Country: US (occurrence: US)
  Receive Date: 20200805
  Receipt Date: 20200903
  Transmission Date: 20201103
  Serious: Yes (Hospitalization, Other)
  Sender: FDA-Public Use
  Company Number: US-PFIZER INC-2020295884

PATIENT
  Age: 69 Year
  Sex: Female

DRUGS (2)
  1. METHOTREXATE. [Concomitant]
     Active Substance: METHOTREXATE
     Dosage: UNK
  2. XELJANZ XR [Suspect]
     Active Substance: TOFACITINIB CITRATE
     Indication: RHEUMATOID ARTHRITIS
     Dosage: 11 MG, DAILY
     Route: 048
     Dates: start: 20200801

REACTIONS (5)
  - Thrombosis [Unknown]
  - Muscle spasms [Unknown]
  - Abdominal discomfort [Recovered/Resolved]
  - Pneumoperitoneum [Unknown]
  - Vascular device infection [Unknown]

NARRATIVE: CASE EVENT DATE: 202008
